FAERS Safety Report 7108015-X (Version None)
Quarter: 2010Q4

REPORT INFORMATION
  Report Type: 
  Country: None (occurrence: None)
  Receive Date: 20101109
  Receipt Date: 20101101
  Transmission Date: 20110411
  Serious: Yes (Hospitalization, Other)
  Sender: FDA-Public Use
  Company Number: 2010SP025549

PATIENT
  Age: 55 Year
  Sex: Female
  Weight: 68.0396 kg

DRUGS (2)
  1. PEG-INTRON [Suspect]
     Indication: HEPATITIS C
     Dosage: ; SC
     Route: 058
     Dates: start: 20100415, end: 20100929
  2. RIBAVIRIN [Suspect]
     Indication: HEPATITIS C
     Dosage: ; PO
     Route: 048
     Dates: start: 20100415, end: 20100601

REACTIONS (27)
  - ABDOMINAL DISTENSION [None]
  - ABDOMINAL PAIN [None]
  - ALOPECIA [None]
  - ANXIETY [None]
  - ASTHENIA [None]
  - CHOKING SENSATION [None]
  - CHROMATURIA [None]
  - DENTAL CARIES [None]
  - DEPRESSION [None]
  - DRY SKIN [None]
  - FATIGUE [None]
  - HEADACHE [None]
  - INCREASED TENDENCY TO BRUISE [None]
  - LYMPHADENOPATHY [None]
  - MUSCLE ATROPHY [None]
  - MYALGIA [None]
  - PLATELET COUNT DECREASED [None]
  - PROCEDURAL PAIN [None]
  - PRURITUS [None]
  - PYREXIA [None]
  - RASH GENERALISED [None]
  - SCREAMING [None]
  - SENSATION OF FOREIGN BODY [None]
  - SKIN EXFOLIATION [None]
  - THIRST [None]
  - VOMITING [None]
  - WEIGHT DECREASED [None]
